FAERS Safety Report 7603975-2 (Version None)
Quarter: 2011Q3

REPORT INFORMATION
  Report Type: 
  Country: None (occurrence: None)
  Receive Date: 20110712
  Receipt Date: 20110701
  Transmission Date: 20111222
  Serious: Yes (Disabling, Other)
  Sender: FDA-Public Use
  Company Number: FR-ACTELION-A-CH2010-40716

PATIENT
  Sex: Female

DRUGS (2)
  1. ZAVESCA [Suspect]
     Indication: NIEMANN-PICK DISEASE
     Dosage: 100 MG, TID
     Route: 048
     Dates: end: 20110509
  2. ZAVESCA [Suspect]
     Dosage: 200 MG, TID
     Route: 048
     Dates: start: 20100325

REACTIONS (9)
  - PARADOXICAL DRUG REACTION [None]
  - GAIT DISTURBANCE [None]
  - DRUG INEFFECTIVE [None]
  - CONDITION AGGRAVATED [None]
  - DYSARTHRIA [None]
  - DYSPHAGIA [None]
  - NIEMANN-PICK DISEASE [None]
  - TREMOR [None]
  - COGNITIVE DISORDER [None]
